FAERS Safety Report 4429190-1 (Version None)
Quarter: 2004Q3

REPORT INFORMATION
  Report Type: 
  Country: None (occurrence: None)
  Receive Date: 20040726
  Receipt Date: 22040223
  Transmission Date: 20050211
  Serious: No
  Sender: FDA-Public Use
  Company Number: USA040258220

PATIENT
  Age: 77 Year
  Sex: Female
  Weight: 65 kg

DRUGS (3)
  1. FORTEO [Suspect]
     Dosage: 20 UG/DAY
     Dates: start: 20040119
  2. NITROGLYCERIN [Concomitant]
  3. NASAL SPRAY [Concomitant]

REACTIONS (3)
  - ALOPECIA [None]
  - HEADACHE [None]
  - PAIN [None]
